FAERS Safety Report 7309266-1 (Version None)
Quarter: 2011Q1

REPORT INFORMATION
  Report Type: 
  Country: None (occurrence: None)
  Receive Date: 20110211
  Receipt Date: 20110126
  Transmission Date: 20110831
  Serious: Yes (Other)
  Sender: FDA-Public Use
  Company Number: 2010SP066248

PATIENT
  Age: 74 Year
  Sex: Female

DRUGS (2)
  1. LEVOTHYROXINE SODIUM [Concomitant]
  2. ASMANEX TWISTHALER [Suspect]
     Indication: ASTHMA
     Dosage: 1 DF;QPM
     Dates: end: 20101201

REACTIONS (7)
  - PHARYNGEAL ULCERATION [None]
  - INCORRECT DOSE ADMINISTERED BY DEVICE [None]
  - MOUTH ULCERATION [None]
  - ORAL PAIN [None]
  - DYSGEUSIA [None]
  - OROPHARYNGEAL PAIN [None]
  - DYSPHONIA [None]
